FAERS Safety Report 6271563-9 (Version None)
Quarter: 2009Q3

REPORT INFORMATION
  Report Type: 
  Country: None (occurrence: None)
  Receive Date: 20090715
  Receipt Date: 20090421
  Transmission Date: 20100115
  Serious: Yes (Other)
  Sender: FDA-Public Use
  Company Number: 2009020115

PATIENT
  Sex: Female
  Weight: 119.7 kg

DRUGS (23)
  1. CARIMUNE [Suspect]
     Indication: IMMUNODEFICIENCY COMMON VARIABLE
  2. BYETTA (DRUG USED IN DIABETES) [Concomitant]
  3. OXYGEN (OXYGEN) [Concomitant]
  4. LIDOCAINE/PRILOCAINE (LIDOCAINE) [Concomitant]
  5. PHENERGAN (PHENERGAN /01851401/) [Concomitant]
  6. DIPHENHYDRAMINE HCL [Concomitant]
  7. ATIVAN [Concomitant]
  8. EFFEXOR [Concomitant]
  9. LUVOX [Concomitant]
  10. LASIX [Concomitant]
  11. TOPAMAX [Concomitant]
  12. NORVASC [Concomitant]
  13. DIOVAN [Concomitant]
  14. ALLEGRA [Concomitant]
  15. OS-CAL (OS-CAL) [Concomitant]
  16. GLYBURIDE [Concomitant]
  17. PULMICORT [Concomitant]
  18. PREVACID [Concomitant]
  19. ACCOLATE [Concomitant]
  20. METHOCARBAMOL [Concomitant]
  21. ASPIRIN [Concomitant]
  22. RISPERDAL [Concomitant]
  23. DUONEB (COMBIVERT /01261001/) [Concomitant]

REACTIONS (1)
  - RENAL FAILURE ACUTE [None]
